FAERS Safety Report 23561936 (Version 1)
Quarter: 2024Q1

REPORT INFORMATION
  Report Type: Spontaneous
  Country: CH (occurrence: CH)
  Receive Date: 20240225
  Receipt Date: 20240225
  Transmission Date: 20240409
  Serious: Yes (Hospitalization)
  Sender: FDA-Public Use
  Company Number: None

PATIENT
  Age: 61 Year
  Sex: Male

DRUGS (9)
  1. OLANZAPINE [Suspect]
     Active Substance: OLANZAPINE
     Indication: Suicidal ideation
     Dosage: TIME INTERVAL: 1 TOTAL: IN TOTAL
     Route: 065
     Dates: start: 20240115, end: 20240115
  2. OLANZAPINE [Suspect]
     Active Substance: OLANZAPINE
     Indication: Suicidal ideation
     Dosage: THE MORNING
     Route: 065
  3. ZOLPIDEM [Suspect]
     Active Substance: ZOLPIDEM TARTRATE
     Indication: Suicidal ideation
     Dosage: TIME INTERVAL: 1 TOTAL: IN TOTAL
     Route: 065
     Dates: start: 20240115, end: 20240115
  4. ZOLPIDEM [Suspect]
     Active Substance: ZOLPIDEM TARTRATE
     Indication: Suicidal ideation
     Route: 065
  5. RYBELSUS [Suspect]
     Active Substance: SEMAGLUTIDE
     Indication: Suicidal ideation
     Dosage: TIME INTERVAL: 1 TOTAL: IN TOTAL
     Route: 065
     Dates: start: 20240115, end: 20240115
  6. RYBELSUS [Suspect]
     Active Substance: SEMAGLUTIDE
     Indication: Suicidal ideation
     Route: 065
  7. XANAX [Suspect]
     Active Substance: ALPRAZOLAM
     Indication: Suicidal ideation
     Route: 065
  8. XANAX [Suspect]
     Active Substance: ALPRAZOLAM
     Indication: Suicidal ideation
     Dosage: TIME INTERVAL: 1 TOTAL: IN TOTAL
     Route: 065
     Dates: start: 20240115, end: 20240115
  9. EZETIMIBE [Concomitant]
     Active Substance: EZETIMIBE

REACTIONS (4)
  - Altered state of consciousness [Recovered/Resolved]
  - Drug interaction [Recovered/Resolved]
  - Miosis [Recovered/Resolved]
  - Intentional overdose [Recovered/Resolved]

NARRATIVE: CASE EVENT DATE: 20240115
